FAERS Safety Report 5648930-7 (Version None)
Quarter: 2008Q1

REPORT INFORMATION
  Report Type: 
  Country: None (occurrence: None)
  Receive Date: 20080304
  Receipt Date: 20080226
  Transmission Date: 20080703
  Serious: Yes (Other)
  Sender: FDA-Public Use
  Company Number: US-JNJFOC-20080207118

PATIENT
  Age: 9 Year
  Sex: Male

DRUGS (5)
  1. TYLENOL (CAPLET) [Suspect]
  2. TYLENOL (CAPLET) [Suspect]
     Indication: DRUG USE FOR UNKNOWN INDICATION
  3. TRIAMINIC THIN STRIPS-COUGH AND RUNNY NOSE [Suspect]
     Indication: RHINORRHOEA
     Route: 048
  4. TRIAMINIC THIN STRIPS-COUGH AND RUNNY NOSE [Suspect]
     Indication: COUGH
     Route: 048
  5. TRIAMINIC THIN STRIPS-COUGH AND RUNNY NOSE [Suspect]
     Indication: PYREXIA
     Route: 048

REACTIONS (3)
  - ABNORMAL BEHAVIOUR [None]
  - CONFUSIONAL STATE [None]
  - SOMNOLENCE [None]
